FAERS Safety Report 4381862-3 (Version None)
Quarter: 2004Q2

REPORT INFORMATION
  Report Type: 
  Country: None (occurrence: None)
  Receive Date: 20040615
  Receipt Date: 20040602
  Transmission Date: 20050107
  Serious: Yes (Hospitalization)
  Sender: FDA-Public Use
  Company Number: 2004001465

PATIENT
  Sex: Male

DRUGS (2)
  1. GLIPIZIDE [Suspect]
     Indication: ILL-DEFINED DISORDER
  2. ETHANOL (ETHANOL) [Suspect]
     Indication: ILL-DEFINED DISORDER

REACTIONS (3)
  - ALCOHOL USE [None]
  - HYPOGLYCAEMIC COMA [None]
  - MEDICATION ERROR [None]
